FAERS Safety Report 9351901 (Version 6)
Quarter: 2014Q1

REPORT INFORMATION
  Report Type: Spontaneous
  Country: US (occurrence: US)
  Receive Date: 20130617
  Receipt Date: 20140124
  Transmission Date: 20141002
  Serious: Yes (Hospitalization)
  Sender: FDA-Public Use
  Company Number: US-GLAXOSMITHKLINE-A1027279A

PATIENT
  Age: 66 Year
  Sex: Male

DRUGS (5)
  1. FLOLAN [Suspect]
     Indication: PULMONARY ARTERIAL HYPERTENSION
     Dosage: 13NGKM CONTINUOUS
     Route: 042
     Dates: start: 20130529
  2. CHLORAPREP [Suspect]
     Indication: PRODUCT USED FOR UNKNOWN INDICATION
     Route: 065
  3. COUMADIN [Concomitant]
  4. ADCIRCA [Concomitant]
  5. WARFARIN [Concomitant]

REACTIONS (7)
  - Investigation [Unknown]
  - Pain in jaw [Unknown]
  - Application site irritation [Unknown]
  - Catheter site erythema [Unknown]
  - Dyspnoea [Unknown]
  - Hypoxia [Unknown]
  - Catheter site swelling [Unknown]
